FAERS Safety Report 20711874 (Version 3)
Quarter: 2022Q2

REPORT INFORMATION
  Report Type: Report from Study
  Country: JP (occurrence: JP)
  Receive Date: 20220414
  Receipt Date: 20220420
  Transmission Date: 20220721
  Serious: Yes (Hospitalization, Other)
  Sender: FDA-Public Use
  Company Number: JP-JNJFOC-20220412332

PATIENT
  Age: 69 Year
  Sex: Male
  Weight: 67.8 kg

DRUGS (26)
  1. AMIVANTAMAB [Suspect]
     Active Substance: AMIVANTAMAB
     Indication: Non-small cell lung cancer
     Dosage: C1D1
     Route: 042
     Dates: start: 20220330, end: 20220330
  2. AMIVANTAMAB [Suspect]
     Active Substance: AMIVANTAMAB
     Dosage: C1D2
     Route: 042
     Dates: start: 20220331, end: 20220331
  3. CARBOPLATIN [Suspect]
     Active Substance: CARBOPLATIN
     Indication: Non-small cell lung cancer
     Route: 042
     Dates: start: 20220330, end: 20220330
  4. PEMETREXED [Suspect]
     Active Substance: PEMETREXED
     Indication: Non-small cell lung cancer
     Route: 042
     Dates: start: 20220330, end: 20220330
  5. ESOMEPRAZOLE MAGNESIUM [Concomitant]
     Active Substance: ESOMEPRAZOLE MAGNESIUM
     Indication: Prophylaxis against gastrointestinal ulcer
     Route: 048
  6. ULTRACET [Concomitant]
     Active Substance: ACETAMINOPHEN\TRAMADOL HYDROCHLORIDE
     Indication: Cancer pain
     Route: 048
     Dates: end: 20220405
  7. LOXOPROFEN SODIUM DIHYDRATE [Concomitant]
     Active Substance: LOXOPROFEN SODIUM DIHYDRATE
     Indication: Cancer pain
     Route: 048
  8. HEPARINOID [Concomitant]
     Indication: Dry skin prophylaxis
     Dosage: 1 DOSAGE NUMBER, NO DOSAGE UNIT
     Route: 061
  9. SODIUM FERROUS CITRATE [Concomitant]
     Active Substance: SODIUM FERROUS CITRATE
     Indication: Iron deficiency anaemia
     Route: 048
  10. BISACODYL [Concomitant]
     Active Substance: BISACODYL
     Indication: Constipation
     Route: 054
     Dates: start: 20220401
  11. GLYCERIN [Concomitant]
     Active Substance: GLYCERIN
     Indication: Constipation
     Route: 054
     Dates: start: 20220401
  12. GLYCERIN [Concomitant]
     Active Substance: GLYCERIN
     Indication: Stomatitis
     Dosage: 1 DOSAGE NUMBER, NO DOSAGE UNIT
     Route: 048
     Dates: start: 20220407
  13. METOCLOPRAMIDE [Concomitant]
     Active Substance: METOCLOPRAMIDE
     Indication: Nausea
     Route: 048
     Dates: start: 20220404
  14. METOCLOPRAMIDE [Concomitant]
     Active Substance: METOCLOPRAMIDE
     Route: 042
     Dates: start: 20220404
  15. DIHYDRO-DIRHEINANTHRONE GLUCOSIDE CALCIUM [Concomitant]
     Indication: Constipation
     Route: 048
     Dates: start: 20220404
  16. BETAMETHASONE BUTYRATE PROPIONATE [Concomitant]
     Active Substance: BETAMETHASONE BUTYRATE PROPIONATE
     Indication: Rash
     Dosage: 1 DOSAGE NUMBER, NO DOSAGE UNIT
     Route: 061
     Dates: start: 20220404
  17. HYDROCORTISONE [Concomitant]
     Active Substance: HYDROCORTISONE
     Indication: Anal fissure
     Dosage: 1 DOSAGE NUMBER, NO DOSAGE UNIT
     Route: 061
     Dates: start: 20220405
  18. AMINO ACIDS\DEXTROSE\ELECTROLYTES NOS\VITAMINS [Concomitant]
     Active Substance: AMINO ACIDS\DEXTROSE\ELECTROLYTES NOS\VITAMINS
     Indication: Nausea
     Route: 042
     Dates: start: 20220405
  19. TRAMADOL HYDROCHLORIDE [Concomitant]
     Active Substance: TRAMADOL HYDROCHLORIDE
     Indication: Cancer pain
     Route: 048
     Dates: start: 20220405
  20. PIPERACILLIN AND TAZOBACTAM [Concomitant]
     Active Substance: PIPERACILLIN SODIUM\TAZOBACTAM SODIUM
     Indication: Prophylaxis
     Route: 042
     Dates: start: 20220405
  21. FILGRASTIM [Concomitant]
     Active Substance: FILGRASTIM
     Indication: Neutrophil count decreased
     Route: 058
     Dates: start: 20220405
  22. HACHIAZULE [SODIUM BICARBONATE;SODIUM GUALENATE] [Concomitant]
     Indication: Stomatitis
     Dosage: 1 DOSAGE NUMBER, NO DOSAGE UNIT
     Route: 048
     Dates: start: 20220407
  23. LIDOCAINE [Concomitant]
     Active Substance: LIDOCAINE
     Indication: Stomatitis
     Dosage: 1 DOSAGE NUMBER, NO DOSAGE UNIT
     Route: 048
     Dates: start: 20220407
  24. DEXAMETHASONE [Concomitant]
     Active Substance: DEXAMETHASONE
     Indication: Stomatitis
     Dosage: 1 DOSAGE NUMBER, NO DOSAGE UNIT
     Route: 048
     Dates: start: 20220408
  25. CLOSTRIDIUM BUTYRICUM SPORES STRAIN M-55 [Concomitant]
     Active Substance: CLOSTRIDIUM BUTYRICUM SPORES STRAIN M-55
     Indication: Bowel movement irregularity
     Route: 048
  26. PANVITAN [VITAMINS NOS] [Concomitant]
     Indication: Prophylactic chemotherapy
     Route: 048
     Dates: start: 20220323

REACTIONS (2)
  - Hepatic function abnormal [Recovered/Resolved]
  - Platelet count decreased [Recovered/Resolved]

NARRATIVE: CASE EVENT DATE: 20220405
